FAERS Safety Report 7627236-0 (Version None)
Quarter: 2011Q3

REPORT INFORMATION
  Report Type: 
  Country: None (occurrence: None)
  Receive Date: 20110714
  Receipt Date: 20110701
  Transmission Date: 20111222
  Serious: Yes (Hospitalization)
  Sender: FDA-Public Use
  Company Number: JP-2011-11082

PATIENT
  Age: 79 Year
  Sex: Male
  Weight: 70 kg

DRUGS (8)
  1. MADOPAR (BENSERAZIDE HYDROCHLORIDE, LEVODOPA) [Concomitant]
  2. GLUCOPHAGE [Concomitant]
  3. ACETYLSALICYLIC ACID SRT [Concomitant]
  4. PLETAL [Suspect]
     Indication: INTERMITTENT CLAUDICATION
     Dates: start: 20110520, end: 20110617
  5. PLETAL [Suspect]
     Indication: INTERMITTENT CLAUDICATION
     Dates: start: 20110701
  6. SEROQUEL [Concomitant]
  7. AMARYL [Concomitant]
  8. NOOTROPIL (PIRACETAM) [Concomitant]

REACTIONS (1)
  - HAEMORRHOIDAL HAEMORRHAGE [None]
